FAERS Safety Report 8764775 (Version 1)
Quarter: 2012Q4

REPORT INFORMATION
  Report Type: 
  Country: CN (occurrence: CN)
  Receive Date: 20120831
  Receipt Date: 20120831
  Transmission Date: 20130627
  Serious: Yes (Other)
  Sender: FDA-Public Use
  Company Number: CN-ROCHE-1104613

PATIENT
  Age: 86 Year
  Sex: Male
  Weight: 55 kg

DRUGS (4)
  1. ROCEPHIN [Suspect]
     Indication: UPPER RESPIRATORY TRACT INFECTION
     Route: 041
     Dates: start: 20091127, end: 20091204
  2. ASPIRIN ENTERIC COATED [Suspect]
     Indication: CEREBRAL INFARCTION
     Route: 048
     Dates: start: 20091126, end: 20091204
  3. RINGER^S INJECTION, LACTATED [Suspect]
     Indication: CEREBRAL INFARCTION
     Route: 041
     Dates: start: 20091127, end: 20091206
  4. MECLOFENOXATE HYDROCHLORIDE [Concomitant]
     Indication: CEREBRAL INFARCTION
     Route: 041
     Dates: start: 20091202, end: 20091203

REACTIONS (7)
  - Haematuria [Recovered/Resolved]
  - Chills [Recovered/Resolved]
  - Pallor [Recovered/Resolved]
  - Confusional state [Recovered/Resolved]
  - Pyrexia [Recovered/Resolved]
  - Rash [Recovered/Resolved]
  - Chest pain [Recovered/Resolved]
